FAERS Safety Report 5750036-3 (Version None)
Quarter: 2008Q2

REPORT INFORMATION
  Report Type: 
  Country: None (occurrence: None)
  Receive Date: 20080527
  Receipt Date: 20080430
  Transmission Date: 20081010
  Serious: No
  Sender: FDA-Public Use
  Company Number: US-BOEHRINGER INGELHEIM GMBH, GERMANY-2008-BP-06899BP

PATIENT
  Sex: Female

DRUGS (9)
  1. SPIRIVA [Suspect]
     Indication: ASTHMA
     Route: 055
  2. PREDNISONE TAB [Concomitant]
     Indication: SARCOIDOSIS
  3. SINGULAIR [Concomitant]
  4. PULMICORT [Concomitant]
  5. ATROVENT [Concomitant]
  6. PREVACID [Concomitant]
  7. HRT [Concomitant]
  8. DAYPRO [Concomitant]
  9. NEURONTIN [Concomitant]

REACTIONS (3)
  - COUGH [None]
  - DYSPNOEA [None]
  - WHEEZING [None]
